FAERS Safety Report 9988800 (Version 1)
Quarter: 2013Q4

REPORT INFORMATION
  Report Type: Spontaneous
  Country: GB (occurrence: None)
  Receive Date: 20131011
  Receipt Date: 20131011
  Transmission Date: 20140711
  Serious: Yes (Other)
  Sender: FDA-Public Use
  Company Number: 2013-08080

PATIENT
  Age: 75 Year
  Sex: Male

DRUGS (1)
  1. BCG [Suspect]
     Indication: BLADDER CANCER
     Dosage: INTRAVESICAL

REACTIONS (5)
  - Scrotal pain [None]
  - Scrotal swelling [None]
  - Granuloma [None]
  - Necrosis [None]
  - Orchitis [None]
